FAERS Safety Report 8977099 (Version 1)
Quarter: 2012Q4

REPORT INFORMATION
  Report Type: 
  Country: US (occurrence: US)
  Receive Date: 20121220
  Receipt Date: 20121220
  Transmission Date: 20130627
  Serious: Yes (Other)
  Sender: FDA-Public Use
  Company Number: US-ELI_LILLY_AND_COMPANY-US201211007187

PATIENT
  Sex: Male

DRUGS (4)
  1. EFFIENT [Suspect]
     Indication: STENT PLACEMENT
     Dosage: 10 mg, UNK
     Dates: end: 20121127
  2. BABY ASPIRIN [Concomitant]
  3. VITAMIN D [Concomitant]
     Dosage: UNK, 2/M
  4. PRILOSEC [Concomitant]

REACTIONS (3)
  - Arthritis [Unknown]
  - Back pain [Unknown]
  - Incorrect storage of drug [Unknown]
